FAERS Safety Report 6557840-2 (Version None)
Quarter: 2010Q1

REPORT INFORMATION
  Report Type: 
  Country: None (occurrence: None)
  Receive Date: 20100129
  Receipt Date: 20100126
  Transmission Date: 20100710
  Serious: Yes (Other)
  Sender: FDA-Public Use
  Company Number: CHPA2010US01881

PATIENT
  Age: 32 Year
  Sex: Male
  Weight: 108.84 kg

DRUGS (1)
  1. 4 WAY FAST ACTING NASAL SPRAY (NCH) [Suspect]
     Indication: NASAL CONGESTION
     Dosage: UNK, QD
     Route: 045

REACTIONS (2)
  - DRUG DEPENDENCE [None]
  - INTENTIONAL DRUG MISUSE [None]
